FAERS Safety Report 9148425 (Version 1)
Quarter: 2013Q1

REPORT INFORMATION
  Report Type: Spontaneous
  Country: US (occurrence: None)
  Receive Date: 20130228
  Receipt Date: 20130228
  Transmission Date: 20140127
  Serious: Yes (Disabling)
  Sender: FDA-Public Use
  Company Number: None

PATIENT
  Age: 78 Year
  Sex: Female
  Weight: 54.43 kg

DRUGS (1)
  1. SUCRALFATE [Suspect]
     Indication: GASTRITIS
     Dosage: 1 TAB QID PO
     Route: 048

REACTIONS (1)
  - Haemoglobin decreased [None]
